FAERS Safety Report 5373825-6 (Version None)
Quarter: 2007Q2

REPORT INFORMATION
  Report Type: 
  Country: None (occurrence: None)
  Receive Date: 20070628
  Receipt Date: 20070620
  Transmission Date: 20071010
  Serious: Yes (Hospitalization)
  Sender: FDA-Public Use
  Company Number: SE-PFIZER INC-2007051424

PATIENT
  Sex: Female

DRUGS (5)
  1. SALAZOPYRIN [Suspect]
     Indication: COLITIS ULCERATIVE
     Route: 048
  2. RANITIDINE [Suspect]
     Indication: GASTRITIS
     Dosage: DAILY DOSE:150MG
     Route: 048
  3. RANITIDINE [Suspect]
     Indication: DUODENITIS
  4. ACETAMINOPHEN [Concomitant]
     Route: 054
  5. ABSENOR [Concomitant]
     Route: 048

REACTIONS (2)
  - PANCYTOPENIA [None]
  - RASH MACULO-PAPULAR [None]
